FAERS Safety Report 6760646-2 (Version None)
Quarter: 2010Q2

REPORT INFORMATION
  Report Type: 
  Country: None (occurrence: None)
  Receive Date: 20100608
  Receipt Date: 20100526
  Transmission Date: 20101027
  Serious: Yes (Disabling, Other)
  Sender: FDA-Public Use
  Company Number: US-PFIZER INC-2010067043

PATIENT
  Sex: Female
  Weight: 99.773 kg

DRUGS (4)
  1. LYRICA [Suspect]
     Indication: FIBROMYALGIA
     Dosage: UNK
     Dates: start: 20080101, end: 20080101
  2. GABAPENTIN [Concomitant]
     Dosage: UNK
  3. EFFEXOR [Concomitant]
     Dosage: UNK
  4. REGLAN [Concomitant]
     Dosage: UNK

REACTIONS (6)
  - BACK DISORDER [None]
  - EYE DISORDER [None]
  - HEAD TITUBATION [None]
  - NERVOUS SYSTEM DISORDER [None]
  - PARKINSONISM [None]
  - TREMOR [None]
